FAERS Safety Report 21087409 (Version 1)
Quarter: 2022Q3

REPORT INFORMATION
  Report Type: Spontaneous
  Country: US (occurrence: US)
  Receive Date: 20220715
  Receipt Date: 20220715
  Transmission Date: 20221027
  Serious: Yes (Hospitalization)
  Sender: FDA-Public Use
  Company Number: US-BRISTOL-MYERS SQUIBB COMPANY-2022-069948

PATIENT
  Age: 65 Year
  Sex: Male

DRUGS (1)
  1. POMALYST [Suspect]
     Active Substance: POMALIDOMIDE
     Indication: Plasma cell myeloma
     Dosage: TAKE1 CAPSULE BY MOUTH EVERY DAY AT THE SAME TIME FOR 21 DAYS THEN OFF FOR 7 DAYS. TAKE WHOLE ON EMP
     Route: 048

REACTIONS (1)
  - Adverse event [Unknown]
